FAERS Safety Report 6302074-X (Version None)
Quarter: 2009Q3

REPORT INFORMATION
  Report Type: 
  Country: None (occurrence: None)
  Receive Date: 20090807
  Receipt Date: 20090803
  Transmission Date: 20100115
  Serious: Yes (Hospitalization)
  Sender: FDA-Public Use
  Company Number: TR-ELI_LILLY_AND_COMPANY-TR200907003259

PATIENT
  Sex: Female

DRUGS (7)
  1. HUMULIN N [Suspect]
     Indication: DIABETES MELLITUS
     Dosage: 54 U, EACH MORNING
     Route: 058
     Dates: start: 20090201, end: 20090101
  2. HUMULIN N [Suspect]
     Dosage: UNK, EACH MORNING
     Route: 058
     Dates: start: 20090101, end: 20090101
  3. HUMULIN N [Suspect]
     Dosage: 54 U, EACH MORNING
     Route: 058
     Dates: start: 20090101
  4. HUMALOG MIX 75/25 [Suspect]
     Indication: DIABETES MELLITUS
     Dosage: 34 U, EACH EVENING
     Route: 058
     Dates: start: 20080101
  5. HUMALOG MIX 75/25 [Suspect]
     Dosage: UNK, EACH EVENING
     Route: 058
  6. HUMALOG MIX 75/25 [Suspect]
     Dosage: 34 U, EACH EVENING
     Route: 058
  7. ENAPRIL                            /00574901/ [Concomitant]
     Indication: HYPERTENSION
     Dosage: UNK UNK, DAILY (1/D)
     Route: 048
     Dates: start: 20090101

REACTIONS (1)
  - BLOOD GLUCOSE INCREASED [None]
